FAERS Safety Report 9384055 (Version 2)
Quarter: 2014Q2

REPORT INFORMATION
  Report Type: Spontaneous
  Country: US (occurrence: US)
  Receive Date: 20130705
  Receipt Date: 20140509
  Transmission Date: 20141212
  Serious: Yes (Congenital Anomaly, Other)
  Sender: FDA-Public Use
  Company Number: US-JNJFOC-20130504091

PATIENT
  Age: 9 Day
  Sex: Male

DRUGS (1)
  1. TOPAMAX [Suspect]
     Indication: FOETAL EXPOSURE DURING PREGNANCY
     Route: 064
     Dates: start: 2006, end: 20070204

REACTIONS (5)
  - Congenital anomaly [Unknown]
  - Cleft lip and palate [Recovering/Resolving]
  - Conductive deafness [Unknown]
  - Otitis media [Unknown]
  - Speech disorder [Recovering/Resolving]
